FAERS Safety Report 5374853-7 (Version None)
Quarter: 2007Q2

REPORT INFORMATION
  Report Type: 
  Country: None (occurrence: None)
  Receive Date: 20070629
  Receipt Date: 20070621
  Transmission Date: 20071010
  Serious: Yes (Death)
  Sender: FDA-Public Use
  Company Number: B0475983A

PATIENT
  Age: 54 Year
  Sex: Male
  Weight: 60 kg

DRUGS (7)
  1. GW679769 [Suspect]
     Dates: start: 20070530, end: 20070601
  2. ZOFRAN [Suspect]
     Dosage: 32MG CYCLIC
     Route: 042
     Dates: start: 20070530, end: 20070530
  3. DEXAMETHASONE 0.5MG TAB [Suspect]
     Route: 048
     Dates: start: 20070530, end: 20070602
  4. CISPLATIN [Concomitant]
     Indication: CHEMOTHERAPY
     Dosage: 1600MG PER DAY
     Route: 042
     Dates: start: 20070530
  5. FLUOROURACIL [Concomitant]
     Indication: CHEMOTHERAPY
     Dosage: 1500MG PER DAY
     Route: 042
     Dates: start: 20070530
  6. ALDACTONE [Concomitant]
     Indication: HYPERTENSION
     Dosage: 100MG PER DAY
     Route: 048
     Dates: start: 20070604, end: 20070617
  7. LISINOPRIL [Concomitant]
     Indication: HYPERTENSION
     Dosage: 10MG PER DAY
     Route: 048
     Dates: start: 20070604, end: 20070617

REACTIONS (1)
  - MYOCARDIAL INFARCTION [None]
